FAERS Safety Report 15904034 (Version 3)
Quarter: 2019Q3

REPORT INFORMATION
  Report Type: Report from Study
  Country: US (occurrence: US)
  Receive Date: 20190204
  Receipt Date: 20190724
  Transmission Date: 20191004
  Serious: Yes (Hospitalization, Other)
  Sender: FDA-Public Use
  Company Number: PHEH2019US004971

PATIENT
  Age: 15 Year
  Sex: Male
  Weight: 60 kg

DRUGS (20)
  1. SYNTHROID [Suspect]
     Active Substance: LEVOTHYROXINE SODIUM
     Indication: HYPOPITUITARISM
     Dosage: 1 DF, QD
     Route: 048
     Dates: start: 20190429
  2. AUGMENTIN [Concomitant]
     Active Substance: AMOXICILLIN\CLAVULANATE POTASSIUM
     Indication: PRODUCT USED FOR UNKNOWN INDICATION
     Dosage: 875-125 MG
     Route: 048
  3. LIDOCAINE. [Concomitant]
     Active Substance: LIDOCAINE
     Indication: PRODUCT USED FOR UNKNOWN INDICATION
     Dosage: 0.2 ML, PRN (BUFFERED J-TIP)
     Route: 065
  4. EMLA [Concomitant]
     Active Substance: LIDOCAINE\PRILOCAINE
     Indication: PRODUCT USED FOR UNKNOWN INDICATION
     Dosage: 2.5-2.5 %, PRN
     Route: 061
  5. DDAVP [Suspect]
     Active Substance: DESMOPRESSIN ACETATE
     Dosage: 0.1 ML, BID (10 MCG/SPRAY) (NASAL SPRAY 2 SPRAY)
     Route: 045
     Dates: start: 20190429
  6. DDAVP [Suspect]
     Active Substance: DESMOPRESSIN ACETATE
     Dosage: 0.1 ML, UNK (10 MCG/SPRAY)
     Route: 045
  7. DDAVP [Suspect]
     Active Substance: DESMOPRESSIN ACETATE
     Dosage: 2 SPRAY EVERY MORNING, MIDDAY 1 SPRAY, 2 SPRAY AT BEDTIME
     Route: 065
  8. SODIUM CHLORIDE. [Concomitant]
     Active Substance: SODIUM CHLORIDE
     Indication: PRODUCT USED FOR UNKNOWN INDICATION
     Dosage: 6 ML, PRN (1-10 ML)
     Route: 042
     Dates: start: 20190428
  9. OMNITROPE [Suspect]
     Active Substance: SOMATROPIN
     Indication: HYPOPITUITARISM
     Dosage: 1.6 MG, QD (6.7 MG/ML)
     Route: 058
     Dates: end: 20190428
  10. DDAVP [Suspect]
     Active Substance: DESMOPRESSIN ACETATE
     Indication: HYPOPITUITARISM
     Dosage: 4 DF, QD
     Route: 045
  11. LIDOCAINE. [Concomitant]
     Active Substance: LIDOCAINE
     Dosage: 0.2 ML, PRN
     Route: 065
     Dates: start: 20190428
  12. TESTOSTERONE. [Suspect]
     Active Substance: TESTOSTERONE
     Indication: HYPOPITUITARISM
     Dosage: 0.25 ML, EVERY 28 DAYS (50 MG TOTAL)
     Route: 030
  13. DDAVP [Suspect]
     Active Substance: DESMOPRESSIN ACETATE
     Dosage: 0.1 ML, QD (10 MCG/SPRAY) (NASAL SPRAY 1 SPRAY)
     Route: 045
     Dates: start: 20190429
  14. DDAVP [Suspect]
     Active Substance: DESMOPRESSIN ACETATE
     Dosage: 4 SPRAYS EVERY MORNING AND MIDDAY, 2 AT DINNER, 6 AT BEDTIME
     Route: 065
  15. NACL.9% [Concomitant]
     Indication: PRODUCT USED FOR UNKNOWN INDICATION
     Dosage: 98 ML/HR, CONTINUOUS
     Route: 042
     Dates: start: 20190428
  16. SODIUM CHLORIDE. [Concomitant]
     Active Substance: SODIUM CHLORIDE
     Dosage: UNK UNK, PRN
     Route: 042
  17. DEXTROSE. [Concomitant]
     Active Substance: DEXTROSE
     Indication: PRODUCT USED FOR UNKNOWN INDICATION
     Dosage: 98 ML/HR, CONTINUOUS
     Route: 042
     Dates: start: 20190428
  18. PAIN EASE [Concomitant]
     Active Substance: CAMPHOR OIL\MENTHOL\METHYL SALICYLATE
     Indication: PRODUCT USED FOR UNKNOWN INDICATION
     Dosage: UNK UNK, PRN
     Route: 061
  19. DDAVP [Suspect]
     Active Substance: DESMOPRESSIN ACETATE
     Dosage: 0.1 ML, QHS (10 MCG/SPRAY) (NASAL SPRAY 3 SPRAY)
     Route: 045
  20. TYLENOL [Concomitant]
     Active Substance: ACETAMINOPHEN
     Indication: PRODUCT USED FOR UNKNOWN INDICATION
     Dosage: 15 MG/KG/DOSE, Q4H (PRN)
     Route: 048

REACTIONS (31)
  - Headache [Unknown]
  - Hyperhidrosis [Unknown]
  - Cough [Unknown]
  - Lymphoma [Recovering/Resolving]
  - Lymphadenitis [Unknown]
  - Dysphonia [Unknown]
  - Lymphadenopathy [Unknown]
  - Neck pain [Unknown]
  - Tracheal disorder [Unknown]
  - Skull malformation [Unknown]
  - Dysphagia [Unknown]
  - Pleural effusion [Unknown]
  - Throat clearing [Unknown]
  - Pulmonary mass [Unknown]
  - General physical health deterioration [Unknown]
  - Sensation of foreign body [Unknown]
  - Gynaecomastia [Unknown]
  - Nausea [Recovered/Resolved]
  - Non-Hodgkin^s lymphoma [Unknown]
  - Weight decreased [Unknown]
  - Nasal congestion [Unknown]
  - Brachiocephalic vein occlusion [Unknown]
  - Neoplasm malignant [Unknown]
  - Mediastinal mass [Unknown]
  - Pyrexia [Unknown]
  - Tracheal mass [Unknown]
  - Heart rate increased [Unknown]
  - Pulmonary artery stenosis [Unknown]
  - Blood pressure increased [Unknown]
  - Pleural thickening [Unknown]
  - Renal mass [Unknown]

NARRATIVE: CASE EVENT DATE: 20190428
